FAERS Safety Report 5518229-8 (Version None)
Quarter: 2007Q4

REPORT INFORMATION
  Report Type: 
  Country: None (occurrence: None)
  Receive Date: 20071115
  Receipt Date: 20071113
  Transmission Date: 20080405
  Serious: Yes (Other)
  Sender: FDA-Public Use
  Company Number: GB-BRISTOL-MYERS SQUIBB COMPANY-13878285

PATIENT
  Age: 81 Year
  Sex: Male

DRUGS (2)
  1. ABILIFY [Suspect]
     Indication: SCHIZOPHRENIA
     Dosage: 5MG ON 25JUN07; 10MG DAILY ON 02JUL07; 15MG 12JUL07; 20MG 19JUL07 TO 02AUG07.
     Route: 048
     Dates: start: 20070625, end: 20070802
  2. OMEPRAZOLE [Concomitant]
     Route: 048
     Dates: start: 20070621, end: 20070816

REACTIONS (1)
  - INAPPROPRIATE ANTIDIURETIC HORMONE SECRETION [None]
